FAERS Safety Report 5456612-X (Version None)
Quarter: 2007Q3

REPORT INFORMATION
  Report Type: 
  Country: None (occurrence: None)
  Receive Date: 20070918
  Receipt Date: 20070917
  Transmission Date: 20080115
  Serious: Yes (Death, Other)
  Sender: FDA-Public Use
  Company Number: HQWYE696512MAY05

PATIENT
  Sex: Male
  Weight: 141 kg

DRUGS (13)
  1. CYCLOSPORINE [Suspect]
     Indication: PROPHYLAXIS AGAINST TRANSPLANT REJECTION
     Route: 048
     Dates: start: 20020405
  2. PREDNISONE [Concomitant]
  3. LANTUS [Concomitant]
  4. INSULIN LISPRO [Concomitant]
  5. TOPROL-XL [Concomitant]
  6. AMBIEN [Concomitant]
  7. COZAAR [Concomitant]
  8. INDOMETHACIN [Concomitant]
  9. PRILOSEC [Concomitant]
  10. ARICEPT [Concomitant]
  11. FOLIC ACID [Concomitant]
  12. ASPIRIN [Concomitant]
  13. NORVASC [Concomitant]

REACTIONS (1)
  - HEPATIC CANCER METASTATIC [None]
